FAERS Safety Report 24574637 (Version 2)
Quarter: 2024Q4

REPORT INFORMATION
  Report Type: Spontaneous
  Country: BR (occurrence: BR)
  Receive Date: 20241104
  Receipt Date: 20241231
  Transmission Date: 20250115
  Serious: Yes (Life-Threatening, Other)
  Sender: Unknown Manufacturer
  Company Number: BR-AstraZeneca-CH-00727131A

PATIENT

DRUGS (3)
  1. METOPROLOL SUCCINATE [Interacting]
     Active Substance: METOPROLOL SUCCINATE
     Indication: Arrhythmia
     Dosage: 25 MILLIGRAM, QD
     Route: 048
  2. CINNARIZINE [Interacting]
     Active Substance: CINNARIZINE
     Indication: Product used for unknown indication
     Dosage: UNK
  3. FORMOTEROL [Concomitant]
     Active Substance: FORMOTEROL
     Indication: Product used for unknown indication
     Dosage: UNK

REACTIONS (13)
  - Hypertensive crisis [Recovered/Resolved]
  - Condition aggravated [Recovered/Resolved]
  - Glaucoma [Unknown]
  - Drug interaction [Unknown]
  - Heart rate increased [Recovered/Resolved]
  - Blood pressure increased [Unknown]
  - Sciatica [Recovered/Resolved]
  - Labyrinthitis [Unknown]
  - Chronic obstructive pulmonary disease [Unknown]
  - Nausea [Recovered/Resolved]
  - Vomiting [Recovered/Resolved]
  - Somnolence [Unknown]
  - Product dose omission issue [Unknown]

NARRATIVE: CASE EVENT DATE: 20241014
